FAERS Safety Report 6906496-5 (Version None)
Quarter: 2010Q3

REPORT INFORMATION
  Report Type: 
  Country: None (occurrence: None)
  Receive Date: 20100804
  Receipt Date: 20100723
  Transmission Date: 20110219
  Serious: Yes (Other)
  Sender: FDA-Public Use
  Company Number: US-PFIZER INC-2010083691

PATIENT
  Sex: Female
  Weight: 79.8 kg

DRUGS (12)
  1. CHANTIX [Suspect]
     Indication: SMOKING CESSATION THERAPY
     Dosage: 0.5 MG, 1X/DAY
     Route: 048
     Dates: start: 20100629, end: 20100101
  2. CHANTIX [Suspect]
     Dosage: 0.5 MG, 2X/DAY
     Route: 048
     Dates: start: 20100101, end: 20100702
  3. CHANTIX [Suspect]
     Dosage: UNK
     Dates: start: 20100101, end: 20100716
  4. PLAVIX [Concomitant]
     Indication: ANTICOAGULANT THERAPY
     Dosage: 75 MG, 1X/DAY
     Route: 048
  5. SYNTHROID [Concomitant]
     Indication: HYPERTHYROIDISM
     Dosage: 88 UG, 1X/DAY
     Route: 048
  6. SYNTHROID [Concomitant]
     Indication: THYROID DISORDER
  7. PREVACID [Concomitant]
     Indication: OESOPHAGEAL DISORDER
     Dosage: 30 MG, 1X/DAY
     Route: 048
  8. PREVACID [Concomitant]
     Indication: HIATUS HERNIA
  9. LISINOPRIL [Concomitant]
     Indication: BLOOD PRESSURE ABNORMAL
     Dosage: 5 MG, 1X/DAY
     Route: 048
  10. XANAX [Concomitant]
     Indication: ANXIETY
     Dosage: UNK MG, 3X/DAY
     Route: 048
  11. ZOCOR [Concomitant]
     Indication: BLOOD CHOLESTEROL ABNORMAL
     Dosage: 40 MG, 1X/DAY
     Route: 048
  12. ACETYLSALICYLIC ACID [Concomitant]
     Dosage: 81 MG, 1X/DAY
     Route: 048

REACTIONS (3)
  - GENITAL INFECTION FUNGAL [None]
  - MUSCULAR WEAKNESS [None]
  - NERVOUSNESS [None]
